FAERS Safety Report 16032826 (Version 1)
Quarter: 2019Q1

REPORT INFORMATION
  Report Type: Spontaneous
  Country: US (occurrence: US)
  Receive Date: 20190305
  Receipt Date: 20190305
  Transmission Date: 20190418
  Serious: No
  Sender: FDA-Public Use
  Company Number: US-IMPAX LABORATORIES, LLC-2018-IPXL-02143

PATIENT
  Age: 51 Year
  Sex: Male
  Weight: 88 kg

DRUGS (6)
  1. RYTARY [Suspect]
     Active Substance: CARBIDOPA\LEVODOPA
     Dosage: 48.75/195MG, TWO CAPSULES ALTERNATED WITH ONE CAPSULE, EVERY FOUR HOURS
     Route: 048
     Dates: start: 201806, end: 201806
  2. RYTARY [Suspect]
     Active Substance: CARBIDOPA\LEVODOPA
     Dosage: 1 DF, EVERY HOUR
     Route: 048
     Dates: start: 201806
  3. RYTARY [Suspect]
     Active Substance: CARBIDOPA\LEVODOPA
     Indication: PARKINSON^S DISEASE
     Dosage: 48.75/195MG, FOUR CAPSULES OR FIVE CAPSULES, EVERY FOUR HOURS
     Route: 048
     Dates: start: 201806, end: 201806
  4. AZILECT [Concomitant]
     Active Substance: RASAGILINE MESYLATE
     Indication: PARKINSON^S DISEASE
     Dosage: 1 MG, UNK
     Route: 048
  5. RYTARY [Suspect]
     Active Substance: CARBIDOPA\LEVODOPA
     Dosage: 48.75/195MG, THREE CAPSULES, EVERY FOUR HOURS
     Route: 048
     Dates: start: 201806, end: 201806
  6. RYTARY [Suspect]
     Active Substance: CARBIDOPA\LEVODOPA
     Dosage: 48.75/195MG, TWO CAPSULES, EVERY FOUR HOURS
     Route: 048
     Dates: start: 201806, end: 201806

REACTIONS (7)
  - Oropharyngeal pain [Unknown]
  - Therapeutic response shortened [Unknown]
  - Treatment noncompliance [Unknown]
  - Anxiety [Not Recovered/Not Resolved]
  - Prescribed overdose [Unknown]
  - Drug effect variable [Unknown]
  - Dyskinesia [Unknown]

NARRATIVE: CASE EVENT DATE: 201806
